FAERS Safety Report 25884772 (Version 1)
Quarter: 2025Q4

REPORT INFORMATION
  Report Type: Spontaneous
  Country: US (occurrence: US)
  Receive Date: 20251006
  Receipt Date: 20251006
  Transmission Date: 20260118
  Serious: No
  Sender: IPSEN BIOPHARMACEUTICALS, INC.
  Company Number: US-IPSEN Group, Research and Development-2025-23819

PATIENT
  Age: 45 Year
  Sex: Female

DRUGS (2)
  1. DYSPORT [Suspect]
     Active Substance: ABOBOTULINUMTOXINA
     Indication: Skin cosmetic procedure
  2. DAXXIFY [Concomitant]
     Active Substance: DAXIBOTULINUMTOXIN A-LANM

REACTIONS (7)
  - Vision blurred [Recovered/Resolved]
  - Dysphagia [Recovered/Resolved]
  - Headache [Recovered/Resolved]
  - Skin discolouration [Recovered/Resolved]
  - Tension headache [Recovered/Resolved]
  - Tension headache [Recovered/Resolved]
  - Influenza like illness [Recovered/Resolved]
